FAERS Safety Report 19789036 (Version 1)
Quarter: 2021Q3

REPORT INFORMATION
  Report Type: Spontaneous
  Country: US (occurrence: US)
  Receive Date: 20210904
  Receipt Date: 20210904
  Transmission Date: 20211014
  Serious: No
  Sender: FDA-Public Use
  Company Number: US-ASTRAZENECA-2021A571942

PATIENT
  Age: 59 Year
  Sex: Male
  Weight: 115.7 kg

DRUGS (3)
  1. PULMICORT FLEXHALER [Suspect]
     Active Substance: BUDESONIDE
     Indication: ASTHMA
     Dosage: 180 UG 1 INHALATION TWO TIMES A DAY
     Route: 055
     Dates: start: 20210624
  2. TYLENOL [Concomitant]
     Active Substance: ACETAMINOPHEN
     Indication: BACK PAIN
  3. IBUPROFEN. [Concomitant]
     Active Substance: IBUPROFEN
     Indication: BACK PAIN

REACTIONS (3)
  - Intentional device misuse [Unknown]
  - Back pain [Unknown]
  - Device delivery system issue [Unknown]

NARRATIVE: CASE EVENT DATE: 202106
